FAERS Safety Report 20249219 (Version 5)
Quarter: 2023Q4

REPORT INFORMATION
  Report Type: Spontaneous
  Country: JP (occurrence: JP)
  Receive Date: 20211229
  Receipt Date: 20231219
  Transmission Date: 20240110
  Serious: Yes (Hospitalization, Other)
  Sender: FDA-Public Use
  Company Number: JP-PFIZER INC-202101852602

PATIENT
  Age: 4 Year
  Sex: Male
  Weight: 18.2 kg

DRUGS (5)
  1. SIROLIMUS [Suspect]
     Active Substance: SIROLIMUS
     Indication: Lymphangioma
     Dosage: 1 MG,1 D
     Route: 048
     Dates: start: 20211207, end: 20211218
  2. OK-432 [Suspect]
     Active Substance: OK-432
     Indication: Sclerotherapy
     Dosage: UNK
     Route: 065
     Dates: start: 20210326, end: 20210326
  3. OK-432 [Suspect]
     Active Substance: OK-432
     Dosage: UNK
     Route: 065
     Dates: start: 20210526, end: 20210526
  4. OK-432 [Suspect]
     Active Substance: OK-432
     Dosage: UNK
     Route: 065
     Dates: start: 20211006, end: 20211006
  5. HERBALS [Concomitant]
     Active Substance: HERBALS
     Indication: Lymphangioma
     Dosage: UNK
     Route: 048
     Dates: start: 20211228, end: 20220201

REACTIONS (3)
  - Abscess neck [Recovering/Resolving]
  - Stomatitis [Recovering/Resolving]
  - Therapeutic product effect incomplete [Unknown]

NARRATIVE: CASE EVENT DATE: 20211209
